FAERS Safety Report 25833565 (Version 1)
Quarter: 2025Q3

REPORT INFORMATION
  Report Type: Spontaneous
  Country: EU (occurrence: EU)
  Receive Date: 20250922
  Receipt Date: 20250922
  Transmission Date: 20251021
  Serious: Yes (Other)
  Sender: AMGEN
  Company Number: EU-AMGEN-POLSP2025185346

PATIENT
  Age: 59 Year
  Sex: Female

DRUGS (6)
  1. PANITUMUMAB [Suspect]
     Active Substance: PANITUMUMAB
     Indication: Rectal cancer
     Route: 065
     Dates: start: 202003, end: 2021
  2. PANITUMUMAB [Suspect]
     Active Substance: PANITUMUMAB
     Route: 065
     Dates: start: 2021, end: 202110
  3. LEUCOVORIN [Concomitant]
     Active Substance: LEUCOVORIN\LEUCOVORIN CALCIUM
     Indication: Rectal cancer
     Dates: start: 201202, end: 201704
  4. IRINOTECAN [Concomitant]
     Active Substance: IRINOTECAN
     Indication: Rectal cancer
     Dates: start: 201202, end: 201209
  5. FLUOROURACIL [Concomitant]
     Active Substance: FLUOROURACIL
     Indication: Rectal cancer
     Dates: start: 201202, end: 201704
  6. OXALIPLATIN [Concomitant]
     Active Substance: OXALIPLATIN
     Indication: Rectal cancer
     Route: 065
     Dates: start: 201606, end: 201704

REACTIONS (4)
  - Rectal cancer [Unknown]
  - Herpes zoster [Recovered/Resolved]
  - Hypomagnesaemia [Unknown]
  - Therapy partial responder [Unknown]

NARRATIVE: CASE EVENT DATE: 20210101
